FAERS Safety Report 8335411-5 (Version None)
Quarter: 2012Q2

REPORT INFORMATION
  Report Type: 
  Country: None (occurrence: None)
  Receive Date: 20120503
  Receipt Date: 20120501
  Transmission Date: 20120825
  Serious: Yes (Other)
  Sender: FDA-Public Use
  Company Number: JP-GILEAD-E2B_00001036

PATIENT
  Age: 54 Year
  Sex: Male

DRUGS (4)
  1. HEPSERA [Suspect]
     Route: 048
  2. HEPSERA [Suspect]
     Indication: HEPATITIS B
     Route: 048
  3. LAMIVUDINE [Concomitant]
     Indication: HEPATITIS B
     Route: 048
  4. HEPSERA [Suspect]
     Route: 048

REACTIONS (5)
  - OSTEOMALACIA [None]
  - BONE DISORDER [None]
  - BACK PAIN [None]
  - HYPOPHOSPHATAEMIA [None]
  - ABDOMINAL PAIN UPPER [None]
